FAERS Safety Report 10970582 (Version 2)
Quarter: 2015Q2

REPORT INFORMATION
  Report Type: Spontaneous
  Country: US (occurrence: US)
  Receive Date: 20150331
  Receipt Date: 20150511
  Transmission Date: 20150821
  Serious: Yes (Hospitalization)
  Sender: FDA-Public Use
  Company Number: US-BAXTER-2015BAX015986

PATIENT
  Age: 57 Year
  Sex: Male
  Weight: 54.48 kg

DRUGS (1)
  1. DIANEAL LOW CALCIUM PERITONEAL DIALYSIS SOLUTION WITH DEXTROSE [Suspect]
     Active Substance: CALCIUM CHLORIDE\DEXTROSE\MAGNESIUM CHLORIDE\SODIUM CHLORIDE\SODIUM LACTATE
     Indication: PERITONEAL DIALYSIS
     Route: 033

REACTIONS (5)
  - Gout [Recovering/Resolving]
  - Hypotension [Unknown]
  - Cardiovascular disorder [Unknown]
  - Ulcer [Unknown]
  - Disease complication [Unknown]

NARRATIVE: CASE EVENT DATE: 20150202
